FAERS Safety Report 5334955-8 (Version None)
Quarter: 2007Q1

REPORT INFORMATION
  Report Type: 
  Country: None (occurrence: None)
  Receive Date: 20070308
  Receipt Date: 20070111
  Transmission Date: 20070707
  Serious: No
  Sender: FDA-Public Use
  Company Number: 2007-BP-00462BP

PATIENT
  Age: 52 Year
  Sex: Male

DRUGS (10)
  1. SPIRIVA [Suspect]
     Indication: CHRONIC OBSTRUCTIVE PULMONARY DISEASE
     Dosage: 18 MCG (18 MCG, 1 IN 1 D) IH
     Route: 055
     Dates: start: 20050101
  2. ALBUTEROL [Concomitant]
  3. ADVAIR (SERETIDE [Concomitant]
  4. NASONEX [Concomitant]
  5. OMEPRAZOLE [Concomitant]
  6. FINASTERIDE [Concomitant]
  7. SIMVASTATIN [Concomitant]
  8. SINGULAIR [Concomitant]
  9. CETIRIZINE HCL [Concomitant]
  10. TESSALON [Concomitant]

REACTIONS (1)
  - TOOTH LOSS [None]
